FAERS Safety Report 8513678-8 (Version None)
Quarter: 2012Q3

REPORT INFORMATION
  Report Type: 
  Country: None (occurrence: None)
  Receive Date: 20120717
  Receipt Date: 20120706
  Transmission Date: 20120928
  Serious: Yes (Hospitalization)
  Sender: FDA-Public Use
  Company Number: MX-BRISTOL-MYERS SQUIBB COMPANY-16749921

PATIENT
  Age: 39 Year
  Sex: Female
  Weight: 44 kg

DRUGS (3)
  1. FLUOROURACIL [Suspect]
     Indication: METASTATIC SQUAMOUS CELL CARCINOMA
     Dosage: 1000MG/M2 D1-4 RECENT DOSE: 15JUN12
     Route: 042
     Dates: start: 20120612
  2. CISPLATIN [Suspect]
     Indication: METASTATIC SQUAMOUS CELL CARCINOMA
     Dosage: 100MG/M2 ON D1 LAST DOSE:12JUN12
     Route: 042
     Dates: start: 20120612
  3. ERBITUX [Suspect]
     Indication: METASTATIC SQUAMOUS CELL CARCINOMA
     Dosage: 400MG/M2 D1 OF CYCLE 1. RECENT DOSE: 12JUN12
     Route: 042
     Dates: start: 20120612

REACTIONS (1)
  - MUCOSAL INFLAMMATION [None]
